FAERS Safety Report 9775000 (Version 1)
Quarter: 2013Q4

REPORT INFORMATION
  Report Type: Spontaneous
  Country: US (occurrence: US)
  Receive Date: 20131220
  Receipt Date: 20131220
  Transmission Date: 20140711
  Serious: No
  Sender: FDA-Public Use
  Company Number: US-GLAXOSMITHKLINE-A1035048A

PATIENT
  Sex: Male

DRUGS (2)
  1. AVODART [Suspect]
     Indication: MICTURITION DISORDER
     Dosage: .5MG PER DAY
     Route: 048
     Dates: start: 20130123
  2. RAPAFLO [Concomitant]

REACTIONS (2)
  - Breast enlargement [Not Recovered/Not Resolved]
  - Micturition disorder [Unknown]
